FAERS Safety Report 7400144-6 (Version None)
Quarter: 2011Q2

REPORT INFORMATION
  Report Type: 
  Country: None (occurrence: None)
  Receive Date: 20110405
  Receipt Date: 20110405
  Transmission Date: 20111010
  Serious: Yes (Other)
  Sender: FDA-Public Use
  Company Number: None

PATIENT
  Age: 61 Year
  Sex: Male
  Weight: 77.1115 kg

DRUGS (1)
  1. OXYCODONE/ACETAMINOPHEN [Suspect]
     Indication: ARTHRALGIA
     Dosage: TAKE ONE OR TWO TABLETS BY MOU TH EV 4 HRS AS NEE
     Dates: start: 20110309, end: 20110309

REACTIONS (1)
  - DYSPNOEA [None]
